FAERS Safety Report 17105584 (Version 1)
Quarter: 2019Q4

REPORT INFORMATION
  Report Type: Spontaneous
  Country: US (occurrence: US)
  Receive Date: 20191203
  Receipt Date: 20191203
  Transmission Date: 20200122
  Serious: Yes (Hospitalization, Other)
  Sender: FDA-Public Use
  Company Number: US-ALVOGEN-2019-ALVOGEN-102024

PATIENT
  Age: 66 Year
  Sex: Male

DRUGS (8)
  1. MIDAZOLAM [Concomitant]
     Active Substance: MIDAZOLAM HYDROCHLORIDE
     Indication: BLOOD PRESSURE FLUCTUATION
     Route: 030
  2. DISULFIRAM. [Suspect]
     Active Substance: DISULFIRAM
     Indication: METASTATIC MALIGNANT MELANOMA
     Dosage: 500 MG DAILY
  3. PEMBROLIZUMAB. [Concomitant]
     Active Substance: PEMBROLIZUMAB
  4. DISULFIRAM. [Suspect]
     Active Substance: DISULFIRAM
     Indication: METASTATIC MALIGNANT MELANOMA
     Dosage: 250 MG DAILY
  5. HYDRALAZINE [Concomitant]
     Active Substance: HYDRALAZINE HYDROCHLORIDE
     Indication: BLOOD PRESSURE FLUCTUATION
  6. HALOPERIDOL. [Concomitant]
     Active Substance: HALOPERIDOL
     Route: 042
  7. IPILIMUMAB [Concomitant]
     Active Substance: IPILIMUMAB
  8. LABETALOL [Concomitant]
     Active Substance: LABETALOL\LABETALOL HYDROCHLORIDE
     Indication: BLOOD PRESSURE FLUCTUATION
     Route: 042

REACTIONS (4)
  - Intentional overdose [Unknown]
  - Off label use [Unknown]
  - Posterior reversible encephalopathy syndrome [Unknown]
  - Toxicity to various agents [Unknown]
